FAERS Safety Report 19030410 (Version 1)
Quarter: 2021Q1

REPORT INFORMATION
  Report Type: Spontaneous
  Country: US (occurrence: US)
  Receive Date: 20210317
  Receipt Date: 20210317
  Transmission Date: 20210420
  Serious: No
  Sender: FDA-Public Use
  Company Number: None

PATIENT
  Age: 51 Year
  Sex: Female

DRUGS (1)
  1. TALTZ [Suspect]
     Active Substance: IXEKIZUMAB
     Indication: PSORIASIS
     Dosage: OTHER DOSE:160MG/80MG;OTHER FREQUENCY:DAY 1/DAY 15;?
     Route: 058
     Dates: start: 20210218

REACTIONS (1)
  - Product preparation error [None]

NARRATIVE: CASE EVENT DATE: 20210225
